FAERS Safety Report 13666720 (Version 1)
Quarter: 2017Q2

REPORT INFORMATION
  Report Type: Spontaneous
  Country: US (occurrence: US)
  Receive Date: 20170619
  Receipt Date: 20170619
  Transmission Date: 20170830
  Serious: No
  Sender: FDA-Public Use
  Company Number: US-ROCHE-1249660

PATIENT
  Sex: Male

DRUGS (4)
  1. XELODA [Suspect]
     Active Substance: CAPECITABINE
     Dosage: HE TAKES 1800 MG PER DAY AS THREE 500MG TABS AND TWO 150 MG TABLETS.
     Route: 065
  2. DOCETAXEL. [Concomitant]
     Active Substance: DOCETAXEL
  3. GEMCITABINE [Concomitant]
     Active Substance: GEMCITABINE\GEMCITABINE HYDROCHLORIDE
  4. XELODA [Suspect]
     Active Substance: CAPECITABINE
     Indication: PANCREATIC CARCINOMA
     Dosage: HE TAKES 1800 MG PER DAY AS THREE 500MG TABS AND TWO 150 MG TABLETS.
     Route: 065

REACTIONS (2)
  - White blood cell count decreased [Unknown]
  - Product quality issue [Unknown]
